FAERS Safety Report 5923949-7 (Version None)
Quarter: 2008Q4

REPORT INFORMATION
  Report Type: 
  Country: None (occurrence: None)
  Receive Date: 20081020
  Receipt Date: 20080925
  Transmission Date: 20090506
  Serious: No
  Sender: FDA-Public Use
  Company Number: US-BAYER-200813913BCC

PATIENT
  Age: 66 Year
  Sex: Female
  Weight: 75 kg

DRUGS (12)
  1. ALEVE [Suspect]
     Indication: RHEUMATOID ARTHRITIS
     Dosage: UNIT DOSE: 220 MG
     Route: 048
  2. NEXIUM [Concomitant]
  3. ACCUPRIL [Concomitant]
  4. COLNIDIN [Concomitant]
  5. ALBUTEROL [Concomitant]
  6. SPIRIVA [Concomitant]
  7. ADVAIR DISKUS 100/50 [Concomitant]
  8. OXYCODONE HCL [Concomitant]
  9. XANAX [Concomitant]
  10. ASPIRIN [Concomitant]
  11. TRILEPTAL [Concomitant]
  12. REMERON [Concomitant]

REACTIONS (1)
  - ABDOMINAL DISCOMFORT [None]
